FAERS Safety Report 24681858 (Version 1)
Quarter: 2024Q4

REPORT INFORMATION
  Report Type: Spontaneous
  Country: ES (occurrence: ES)
  Receive Date: 20241130
  Receipt Date: 20241130
  Transmission Date: 20250114
  Serious: Yes (Hospitalization)
  Sender: AMGEN
  Company Number: None

PATIENT
  Age: 50 Year
  Sex: Male
  Weight: 100 kg

DRUGS (6)
  1. BEVACIZUMAB [Suspect]
     Active Substance: BEVACIZUMAB
     Indication: Glioblastoma
     Dosage: 10 MG/KG EVERY 2 WEEKS ALONG WITH IRINOTECAN
     Route: 040
     Dates: start: 20241021, end: 20241021
  2. IRINOTECAN [Concomitant]
     Active Substance: IRINOTECAN
     Dosage: 286 MILLIGRAM, Q2WK
     Route: 040
     Dates: start: 20241021
  3. Ameride [Concomitant]
     Dosage: 1 DOSAGE FORM, QD
     Route: 048
     Dates: start: 20210322
  4. MANIDIPINO CINFA [Concomitant]
     Dosage: 10 MILLIGRAM, QD
     Route: 048
     Dates: start: 20160802
  5. RAMIPRIL CINFA [Concomitant]
     Dosage: 5 MILLIGRAM, QD
     Route: 048
     Dates: start: 20210809
  6. VALPROATE SODIUM [Concomitant]
     Active Substance: VALPROATE SODIUM
     Dosage: 1000 MILLIGRAM, Q12H
     Route: 048
     Dates: start: 20120919

REACTIONS (1)
  - Ischaemic stroke [Recovering/Resolving]

NARRATIVE: CASE EVENT DATE: 20241029
